FAERS Safety Report 22359545 (Version 2)
Quarter: 2023Q2

REPORT INFORMATION
  Report Type: Other
  Country: GB (occurrence: GB)
  Receive Date: 20230524
  Receipt Date: 20230602
  Transmission Date: 20230721
  Serious: Yes (Other)
  Sender: FDA-Public Use
  Company Number: None

PATIENT
  Age: 68 Year
  Sex: Female

DRUGS (4)
  1. PREDNISOLONE [Suspect]
     Active Substance: PREDNISOLONE
     Indication: Product used for unknown indication
     Dosage: UNK
     Route: 065
  2. IMRALDI [Suspect]
     Active Substance: ADALIMUMAB
     Indication: Crohn^s disease
     Dosage: 160 MILLIGRAM (AT WEEK ZERO)
     Route: 058
     Dates: start: 20220329
  3. IMRALDI [Suspect]
     Active Substance: ADALIMUMAB
     Dosage: 80 MILLIGRAM (WEEK TWO)
     Route: 058
  4. IMRALDI [Suspect]
     Active Substance: ADALIMUMAB
     Dosage: 40 MILLIGRAM//0.8 MILLILITER EVERY TWO WEEK
     Route: 058

REACTIONS (12)
  - Crohn^s disease [None]
  - Pain [Unknown]
  - Back pain [Unknown]
  - Peripheral swelling [None]
  - Injection site pain [Unknown]
  - Arthralgia [Unknown]
  - Pain in extremity [None]
  - Musculoskeletal stiffness [None]
  - Trigger finger [Unknown]
  - Urinary tract infection [Recovered/Resolved]
  - Influenza like illness [Unknown]
  - Increased tendency to bruise [Unknown]

NARRATIVE: CASE EVENT DATE: 20220329
